FAERS Safety Report 4326139-7 (Version None)
Quarter: 2004Q1

REPORT INFORMATION
  Report Type: 
  Country: None (occurrence: None)
  Receive Date: 20040323
  Receipt Date: 20040223
  Transmission Date: 20041129
  Serious: No
  Sender: FDA-Public Use
  Company Number: US_0402100903

PATIENT
  Age: 62 Year
  Sex: Male
  Weight: 89 kg

DRUGS (2)
  1. CIALIS [Suspect]
     Indication: HYPERTENSION
     Dosage: 10 MG
     Dates: start: 20040214
  2. LOTREL [Concomitant]

REACTIONS (1)
  - THERAPEUTIC RESPONSE DECREASED [None]
